FAERS Safety Report 7620799-0 (Version None)
Quarter: 2011Q3

REPORT INFORMATION
  Report Type: 
  Country: None (occurrence: None)
  Receive Date: 20110719
  Receipt Date: 20110708
  Transmission Date: 20111222
  Serious: Yes (Hospitalization)
  Sender: FDA-Public Use
  Company Number: PHHY2011US61656

PATIENT
  Age: 43 Year
  Sex: Female

DRUGS (1)
  1. BUPROPION HCL [Suspect]
     Indication: MAJOR DEPRESSION

REACTIONS (10)
  - MACULE [None]
  - OEDEMA [None]
  - ACANTHOSIS [None]
  - RASH ERYTHEMATOUS [None]
  - BODY TEMPERATURE INCREASED [None]
  - PARAKERATOSIS [None]
  - SKIN EXFOLIATION [None]
  - SKIN OEDEMA [None]
  - ACUTE GENERALISED EXANTHEMATOUS PUSTULOSIS [None]
  - SKIN LESION [None]
